FAERS Safety Report 5857882-6 (Version None)
Quarter: 2008Q3

REPORT INFORMATION
  Report Type: 
  Country: None (occurrence: None)
  Receive Date: 20080826
  Receipt Date: 20080716
  Transmission Date: 20090109
  Serious: No
  Sender: FDA-Public Use
  Company Number: US-TEVA-175180USA

PATIENT
  Sex: Male

DRUGS (5)
  1. AZILECT [Suspect]
     Indication: PARKINSON'S DISEASE
     Route: 048
     Dates: start: 20080101, end: 20080101
  2. AZILECT [Suspect]
     Route: 048
     Dates: start: 20080101, end: 20080101
  3. PRAMIPEXOLE DIHYDROCHLORIDE [Concomitant]
  4. SINEMET [Concomitant]
  5. ATENOLOL [Concomitant]

REACTIONS (1)
  - DIZZINESS [None]
